FAERS Safety Report 18600960 (Version 3)
Quarter: 2020Q4

REPORT INFORMATION
  Report Type: Spontaneous
  Country: US (occurrence: US)
  Receive Date: 20201210
  Receipt Date: 20201215
  Transmission Date: 20210114
  Serious: Yes (Other)
  Sender: FDA-Public Use
  Company Number: US-PFIZER INC-2020485550

PATIENT
  Age: 67 Year
  Sex: Male

DRUGS (1)
  1. TAFAMIDIS [Suspect]
     Active Substance: TAFAMIDIS MEGLUMINE
     Indication: AMYLOIDOSIS SENILE
     Dosage: UNK

REACTIONS (3)
  - Left ventricular dilatation [Unknown]
  - Aortic valve incompetence [Unknown]
  - Dyspnoea exertional [Unknown]
